FAERS Safety Report 6731136-8 (Version None)
Quarter: 2010Q2

REPORT INFORMATION
  Report Type: 
  Country: None (occurrence: None)
  Receive Date: 20100518
  Receipt Date: 20100208
  Transmission Date: 20101027
  Serious: No
  Sender: FDA-Public Use
  Company Number: JP-ROCHE-686469

PATIENT
  Sex: Female
  Weight: 26 kg

DRUGS (6)
  1. TAMIFLU [Suspect]
     Dosage: DAILY DOSE : 1/1 DAY. FORM: DRY SYRUP. DRUG REPORTED: TAMIFLU DRY SYRUP 3% (OSELTAMIVIR).
     Route: 048
     Dates: start: 20100204, end: 20100204
  2. MEIACT [Suspect]
     Indication: DRUG USE FOR UNKNOWN INDICATION
     Dosage: DRUG REPORTED: MEIACT (CEFDITOREN PIVOXIL)
     Route: 048
     Dates: start: 20100203
  3. BIOFERMIN [Suspect]
     Indication: DRUG USE FOR UNKNOWN INDICATION
     Dosage: NOTE: UNCERTAINTY. DRUG REPORTED: BIOFERMIN (LACTOMIN)
     Route: 048
  4. HUSCODE [Suspect]
     Indication: DRUG USE FOR UNKNOWN INDICATION
     Dosage: DRUG REPORTED: HUSCODE (ANTITUSSIVE COMBINE DRUG).
     Route: 048
     Dates: start: 20100126
  5. MUCODYNE [Suspect]
     Indication: DRUG USE FOR UNKNOWN INDICATION
     Dosage: NOTE: UNCERTAINTY. FORM; PERORAL AGENT. DRUG REPORTED: MICODYNE (CARBOCISTEINE).
     Route: 048
  6. CALONAL [Suspect]
     Indication: DRUG USE FOR UNKNOWN INDICATION
     Dosage: FORM: PERORAL AGENT. DRUG REPORTED: CALONAL (ACETAMINOPHEN)
     Route: 048
     Dates: start: 20100202

REACTIONS (1)
  - ABNORMAL BEHAVIOUR [None]
